FAERS Safety Report 5763710-X (Version None)
Quarter: 2008Q2

REPORT INFORMATION
  Report Type: 
  Country: None (occurrence: None)
  Receive Date: 20080610
  Receipt Date: 20080604
  Transmission Date: 20081010
  Serious: Yes (Other)
  Sender: FDA-Public Use
  Company Number: US-BAYER-200824528NA

PATIENT
  Age: 15 Year
  Sex: Female

DRUGS (2)
  1. LEUKINE [Suspect]
     Indication: ALVEOLAR PROTEINOSIS
     Route: 058
     Dates: start: 20071201, end: 20080101
  2. LEUKINE [Suspect]
     Route: 058
     Dates: start: 20060101

REACTIONS (4)
  - ANAPHYLACTIC REACTION [None]
  - CHEST DISCOMFORT [None]
  - CHILLS [None]
  - TREMOR [None]
